FAERS Safety Report 6579628-9 (Version None)
Quarter: 2010Q1

REPORT INFORMATION
  Report Type: 
  Country: None (occurrence: None)
  Receive Date: 20100212
  Receipt Date: 20100204
  Transmission Date: 20100710
  Serious: Yes (Death, Hospitalization, Other)
  Sender: FDA-Public Use
  Company Number: US-BAXTER-2010BH002626

PATIENT
  Sex: Female

DRUGS (1)
  1. HEPARIN SODIUM INJECTION [Suspect]
     Indication: DIALYSIS
     Route: 065
     Dates: start: 20070901

REACTIONS (11)
  - ABDOMINAL PAIN [None]
  - ASTHENIA [None]
  - DEATH [None]
  - DECREASED APPETITE [None]
  - DEHYDRATION [None]
  - DIARRHOEA [None]
  - FLANK PAIN [None]
  - GASTRIC INFECTION [None]
  - GASTROINTESTINAL INFECTION [None]
  - NAUSEA [None]
  - VOMITING [None]
